FAERS Safety Report 4454806-3 (Version None)
Quarter: 2004Q3

REPORT INFORMATION
  Report Type: 
  Country: None (occurrence: None)
  Receive Date: 20040826
  Receipt Date: 20040426
  Transmission Date: 20050211
  Serious: No
  Sender: FDA-Public Use
  Company Number: 2004US002107

PATIENT
  Age: 46 Year
  Sex: Female
  Weight: 67.1 kg

DRUGS (6)
  1. ALOXI [Suspect]
     Indication: PROPHYLAXIS OF NAUSEA AND VOMITING
     Dosage: 0.25MG, SINGLE; INTRAVENOUS (SEE IMAGE)
     Route: 042
     Dates: start: 20040416, end: 20040416
  2. ALOXI [Suspect]
     Indication: PROPHYLAXIS OF NAUSEA AND VOMITING
     Dosage: 0.25MG, SINGLE; INTRAVENOUS (SEE IMAGE)
     Route: 042
     Dates: start: 20040421, end: 20040421
  3. CISPLATIN [Concomitant]
  4. GEMZAR [Concomitant]
  5. UNK [Concomitant]
  6. MILD PAIN RELIEVER [Concomitant]

REACTIONS (1)
  - CONSTIPATION [None]
